FAERS Safety Report 16014825 (Version 1)
Quarter: 2019Q1

REPORT INFORMATION
  Report Type: Spontaneous
  Country: US (occurrence: US)
  Receive Date: 20190227
  Receipt Date: 20190227
  Transmission Date: 20190418
  Serious: No
  Sender: FDA-Public Use
  Company Number: US-009507513-1902USA006104

PATIENT
  Sex: Male

DRUGS (3)
  1. PRINIVIL [Suspect]
     Active Substance: LISINOPRIL
     Dosage: UNK
     Route: 048
  2. PROSCAR [Suspect]
     Active Substance: FINASTERIDE
     Dosage: UNK
     Route: 048
  3. JANUVIA [Suspect]
     Active Substance: SITAGLIPTIN PHOSPHATE
     Dosage: UNK
     Route: 048

REACTIONS (1)
  - Hypoacusis [Not Recovered/Not Resolved]
